FAERS Safety Report 20656067 (Version 2)
Quarter: 2022Q2

REPORT INFORMATION
  Report Type: Report from Study
  Country: US (occurrence: US)
  Receive Date: 20220330
  Receipt Date: 20220624
  Transmission Date: 20220721
  Serious: Yes (Hospitalization, Other)
  Sender: FDA-Public Use
  Company Number: US-ABBVIE-22K-163-4336411-00

PATIENT
  Sex: Male

DRUGS (1)
  1. IMBRUVICA [Suspect]
     Active Substance: IBRUTINIB
     Indication: Chronic lymphocytic leukaemia
     Route: 048
     Dates: start: 201710

REACTIONS (6)
  - Intestinal obstruction [Unknown]
  - Hernia [Unknown]
  - Pain [Unknown]
  - Diabetes mellitus [Unknown]
  - Weight decreased [Unknown]
  - Oedema peripheral [Unknown]
